FAERS Safety Report 9961648 (Version 1)
Quarter: 2014Q1

REPORT INFORMATION
  Report Type: Report from Study
  Country: US (occurrence: US)
  Receive Date: 20140305
  Receipt Date: 20140305
  Transmission Date: 20141002
  Serious: No
  Sender: FDA-Public Use
  Company Number: US-ABBVIE-13P-163-1111097-00

PATIENT
  Age: 79 Year
  Sex: Female

DRUGS (6)
  1. HUMIRA [Suspect]
     Indication: COLITIS ULCERATIVE
     Dates: start: 20130608, end: 20130608
  2. HUMIRA [Suspect]
     Dates: start: 20130622, end: 20130622
  3. XANAX [Concomitant]
     Indication: ANXIETY
     Dosage: A SMALL AMOUNT
  4. LEXAPRO [Concomitant]
     Indication: ANXIETY
     Dosage: 10MG EVERY DAY
  5. AMBIEN [Concomitant]
     Indication: INSOMNIA
  6. PREDNISONE [Concomitant]
     Indication: PRODUCT USED FOR UNKNOWN INDICATION
     Dosage: 20MG EVERY DAY

REACTIONS (1)
  - Injection site erythema [Recovered/Resolved]
